FAERS Safety Report 7715805-9 (Version None)
Quarter: 2011Q3

REPORT INFORMATION
  Report Type: 
  Country: None (occurrence: None)
  Receive Date: 20110829
  Receipt Date: 20110829
  Transmission Date: 20111222
  Serious: Yes (Life-Threatening, Hospitalization)
  Sender: FDA-Public Use
  Company Number: None

PATIENT
  Age: 84 Year
  Sex: Female
  Weight: 56 kg

DRUGS (9)
  1. FOLIC ACID [Concomitant]
  2. METOPROLOL TARTRATE [Concomitant]
  3. VITAMIN D [Concomitant]
  4. ZOMETA [Concomitant]
  5. PRADAXA [Suspect]
     Indication: ATRIAL FIBRILLATION
     Dosage: 150MG
     Route: 048
     Dates: start: 20110627, end: 20110711
  6. ATORVASTATIN CALCIUM [Concomitant]
  7. CALCIUM CARBONATE [Concomitant]
  8. PERIDEX [Concomitant]
  9. REVLIMID [Concomitant]

REACTIONS (2)
  - RENAL IMPAIRMENT [None]
  - HAEMORRHAGE [None]
